FAERS Safety Report 10070737 (Version 2)
Quarter: 2014Q2

REPORT INFORMATION
  Report Type: Spontaneous
  Country: US (occurrence: US)
  Receive Date: 20140410
  Receipt Date: 20140519
  Transmission Date: 20141212
  Serious: Yes (Congenital Anomaly, Other)
  Sender: FDA-Public Use
  Company Number: US-PFIZER INC-2014098043

PATIENT
  Sex: Male

DRUGS (11)
  1. ZOLOFT [Suspect]
     Indication: DEPRESSION
     Dosage: UNK
     Route: 064
     Dates: start: 20040609
  2. SERTRALINE HCL [Suspect]
     Indication: DEPRESSION
     Dosage: UNK
     Route: 064
     Dates: start: 20040609
  3. PRENATAL VITAMINS [Concomitant]
     Dosage: UNK
     Route: 064
  4. NORTRIPTYLINE [Concomitant]
     Dosage: UNK
     Route: 064
  5. NAPROXEN [Concomitant]
     Dosage: UNK
     Route: 064
  6. NORTREL [Concomitant]
     Dosage: UNK
     Route: 064
  7. AMOXICILLIN [Concomitant]
     Dosage: UNK
     Route: 064
  8. ORPHENADRINE [Concomitant]
     Dosage: UNK
     Route: 064
  9. HYDROCODONE/ APAP [Concomitant]
     Dosage: UNK
     Route: 064
  10. PROMETHAZINE [Concomitant]
     Dosage: UNK
     Route: 064
  11. GLUTOFAC [Concomitant]
     Dosage: UNK
     Route: 064

REACTIONS (4)
  - Maternal exposure during pregnancy [Unknown]
  - Talipes [Unknown]
  - Patent ductus arteriosus [Unknown]
  - Atrial septal defect [Unknown]
